FAERS Safety Report 15343940 (Version 2)
Quarter: 2018Q3

REPORT INFORMATION
  Report Type: Spontaneous
  Country: US (occurrence: US)
  Receive Date: 20180903
  Receipt Date: 20180917
  Transmission Date: 20181010
  Serious: No
  Sender: FDA-Public Use
  Company Number: US-GLAXOSMITHKLINE-US2018GSK153124

PATIENT
  Age: 65 Year
  Sex: Female

DRUGS (11)
  1. METOPROLOL TABLET [Concomitant]
     Active Substance: METOPROLOL
     Dosage: 50 MG, QD
     Route: 048
  2. ALBUTEROL NEBULES [Concomitant]
     Indication: WHEEZING
     Dosage: 0.083% INHALATION SOLUTION, Q 6 HRS AS NEEDED
  3. BENZONATATE CAPSULE [Concomitant]
     Indication: COUGH
     Dosage: 200 MG, TID, AS NEEDED
     Route: 048
  4. LORAZEPAM TABLET [Concomitant]
     Active Substance: LORAZEPAM
     Dosage: 0.5 MG, QD
     Route: 048
  5. BREO ELLIPTA [Suspect]
     Active Substance: FLUTICASONE FUROATE\VILANTEROL TRIFENATATE
     Indication: CHRONIC OBSTRUCTIVE PULMONARY DISEASE
     Dosage: UNK
     Route: 055
     Dates: start: 20180808, end: 20180817
  6. CETIRIZINE TABLET [Concomitant]
     Dosage: 10 MG, QD
     Route: 048
  7. RANITIDINE. [Concomitant]
     Active Substance: RANITIDINE
     Dosage: 150 MG, UNK
     Route: 048
  8. PROAIR HFA [Concomitant]
     Active Substance: ALBUTEROL SULFATE
     Indication: WHEEZING
     Dosage: 1 PUFF(S), QID, AS NEEDED
     Route: 055
  9. CITALOPRAM [Concomitant]
     Active Substance: CITALOPRAM HYDROBROMIDE
     Dosage: 40 MG, QD
     Route: 048
  10. AMITRIPTYLINE TABLET [Concomitant]
     Dosage: 25 MG, AT QHS
     Route: 048
  11. MELOXICAM. [Concomitant]
     Active Substance: MELOXICAM
     Dosage: 7.5 MG, BID
     Route: 048

REACTIONS (3)
  - Oral pain [Recovered/Resolved]
  - Hypersensitivity [Recovered/Resolved]
  - Swollen tongue [Recovered/Resolved]

NARRATIVE: CASE EVENT DATE: 201808
